FAERS Safety Report 8105797-5 (Version None)
Quarter: 2012Q1

REPORT INFORMATION
  Report Type: 
  Country: None (occurrence: None)
  Receive Date: 20120201
  Receipt Date: 20120130
  Transmission Date: 20120608
  Serious: No
  Sender: FDA-Public Use
  Company Number: US-PFIZER INC-2012025954

PATIENT
  Sex: Female
  Weight: 49.9 kg

DRUGS (8)
  1. RITALIN [Suspect]
     Indication: ATTENTION DEFICIT/HYPERACTIVITY DISORDER
     Dosage: 10 MG, 4X/DAY
  2. LYRICA [Suspect]
     Indication: FIBROMYALGIA
     Dosage: 150 MG, 1X/DAY
  3. WELLBUTRIN [Concomitant]
     Indication: DEPRESSION
     Dosage: 150 MG, 3X/DAY
  4. LYRICA [Suspect]
     Dosage: 150 MG, 2X/DAY
  5. RITALIN [Suspect]
     Dosage: UNK, AS NEEDED
  6. LYRICA [Suspect]
     Dosage: 150 MG, 2X/DAY
  7. LYRICA [Suspect]
     Dosage: 150 MG, 3X/DAY
  8. LYRICA [Suspect]
     Dosage: 150 MG, 1X/DAY
     Dates: end: 20120125

REACTIONS (4)
  - TREMOR [None]
  - MYALGIA [None]
  - WEIGHT DECREASED [None]
  - PAIN [None]
